FAERS Safety Report 22251275 (Version 1)
Quarter: 2023Q2

REPORT INFORMATION
  Report Type: Report from Study
  Country: IT (occurrence: IT)
  Receive Date: 20230425
  Receipt Date: 20230425
  Transmission Date: 20230722
  Serious: Yes (Other)
  Sender: FDA-Public Use
  Company Number: IT-GILEAD-2023-0621667

PATIENT
  Age: 55 Year
  Sex: Male

DRUGS (1)
  1. EMTRICITABINE\TENOFOVIR DISOPROXIL FUMARATE [Suspect]
     Active Substance: EMTRICITABINE\TENOFOVIR DISOPROXIL FUMARATE
     Indication: HIV infection
     Dosage: UNK, QD
     Route: 048

REACTIONS (22)
  - Suicidal ideation [Unknown]
  - Mood altered [Unknown]
  - Performance status decreased [Unknown]
  - Loss of personal independence in daily activities [Unknown]
  - Depression [Unknown]
  - Disturbance in attention [Unknown]
  - Pain [Unknown]
  - Depressed mood [Unknown]
  - Social avoidant behaviour [Unknown]
  - Anger [Unknown]
  - Frustration tolerance decreased [Unknown]
  - Amnesia [Unknown]
  - Decreased interest [Unknown]
  - Feeling of despair [Unknown]
  - Initial insomnia [Unknown]
  - Fatigue [Unknown]
  - Slow speech [Unknown]
  - Terminal insomnia [Unknown]
  - Dyspnoea [Unknown]
  - Cough [Unknown]
  - Feeling cold [Unknown]
  - Nightmare [Unknown]
